FAERS Safety Report 18605794 (Version 3)
Quarter: 2022Q2

REPORT INFORMATION
  Report Type: Spontaneous
  Country: US (occurrence: US)
  Receive Date: 20201211
  Receipt Date: 20220405
  Transmission Date: 20220720
  Serious: Yes (Hospitalization, Other)
  Sender: FDA-Public Use
  Company Number: US-GLAXOSMITHKLINE-US2020GSK243960

PATIENT
  Sex: Male

DRUGS (4)
  1. ZANTAC [Suspect]
     Active Substance: RANITIDINE HYDROCHLORIDE
     Indication: Product used for unknown indication
     Dosage: 75 MG, QD
     Route: 048
  2. ZANTAC [Suspect]
     Active Substance: RANITIDINE HYDROCHLORIDE
     Indication: Gastrooesophageal reflux disease
     Dosage: 75 MG, PRN (75 MG (APPROXIMATELY EVERY DAY OR AT LEAST APPROXIMATELY 3-4 TIMES A WEEK)
     Route: 048
     Dates: start: 2005, end: 2019
  3. ZANTAC [Suspect]
     Active Substance: RANITIDINE HYDROCHLORIDE
     Indication: Dyspepsia
     Dosage: 150 MG (150 MG (APPROXIMATELY EVERY DAY OR AT LEAST APPROXIMATELY 3-4 TIMES A WEEK)
     Route: 065
     Dates: start: 2005, end: 2019
  4. ZANTAC [Suspect]
     Active Substance: RANITIDINE HYDROCHLORIDE
     Dosage: 150 MG, QD (BEDTIME ORALLY ONCE A DAY (PRN)
     Route: 048

REACTIONS (6)
  - Prostate cancer [Unknown]
  - Neoplasm malignant [Unknown]
  - Prostatic dysplasia [Unknown]
  - Calculus prostatic [Unknown]
  - Benign prostatic hyperplasia [Unknown]
  - Prostatic disorder [Unknown]
